FAERS Safety Report 9186439 (Version 4)
Quarter: 2013Q3

REPORT INFORMATION
  Report Type: Spontaneous
  Country: BR (occurrence: BR)
  Receive Date: 20130325
  Receipt Date: 20130717
  Transmission Date: 20140515
  Serious: Yes (Other)
  Sender: FDA-Public Use
  Company Number: PHHY2013BR028508

PATIENT
  Age: 11 Year
  Sex: Male

DRUGS (2)
  1. RITALINA [Suspect]
     Indication: ATTENTION DEFICIT/HYPERACTIVITY DISORDER
     Dosage: 2 DF, TID
  2. CLOXAZOLAM [Suspect]
     Dosage: 2 DF (2 TABLETS), UNK
     Dates: start: 20130320

REACTIONS (3)
  - Malaise [Recovering/Resolving]
  - Somnolence [Recovering/Resolving]
  - Wrong drug administered [Unknown]
